FAERS Safety Report 7650158-6 (Version None)
Quarter: 2011Q3

REPORT INFORMATION
  Report Type: 
  Country: None (occurrence: None)
  Receive Date: 20110802
  Receipt Date: 20110721
  Transmission Date: 20111222
  Serious: Yes (Disabling, Other)
  Sender: FDA-Public Use
  Company Number: US-ROCHE-743329

PATIENT
  Sex: Female
  Weight: 74.8 kg

DRUGS (2)
  1. ACCUTANE [Suspect]
     Indication: ACNE
     Route: 065
     Dates: start: 19940101, end: 19950101
  2. ACCUTANE [Suspect]
     Dosage: FOR 6 MONTHS
     Route: 065
     Dates: start: 19950101, end: 19960101

REACTIONS (5)
  - ANXIETY [None]
  - DEPRESSION [None]
  - INFLAMMATORY BOWEL DISEASE [None]
  - CROHN'S DISEASE [None]
  - COLITIS ULCERATIVE [None]
